FAERS Safety Report 6756247-2 (Version None)
Quarter: 2010Q2

REPORT INFORMATION
  Report Type: 
  Country: None (occurrence: None)
  Receive Date: 20100604
  Receipt Date: 20100527
  Transmission Date: 20101027
  Serious: Yes (Death)
  Sender: FDA-Public Use
  Company Number: GXKR2010PT05954

PATIENT
  Age: 62 Year
  Sex: Male

DRUGS (5)
  1. PREDNISOLONE [Suspect]
     Indication: IMMUNOSUPPRESSION
     Route: 065
  2. MYCOPHENOLATE MOFETIL [Suspect]
     Indication: IMMUNOSUPPRESSION
     Route: 065
  3. CYCLOSPORINE [Suspect]
     Indication: IMMUNOSUPPRESSION
     Route: 065
  4. METHYLPREDNISOLONE 4MG TAB [Suspect]
     Dosage: 500 MG, PULSES THERAPY
     Route: 065
  5. BASILIXIMAB [Suspect]
     Indication: IMMUNOSUPPRESSION
     Route: 065

REACTIONS (11)
  - BRAIN ABSCESS [None]
  - BRAIN OEDEMA [None]
  - COCCIDIOIDOMYCOSIS [None]
  - GRAND MAL CONVULSION [None]
  - HAEMATURIA [None]
  - LEUKOPENIA [None]
  - LOSS OF CONSCIOUSNESS [None]
  - PYREXIA [None]
  - PYURIA [None]
  - SOMNOLENCE [None]
  - SURGERY [None]
